FAERS Safety Report 24252520 (Version 1)
Quarter: 2024Q3

REPORT INFORMATION
  Report Type: Spontaneous
  Country: DE (occurrence: DE)
  Receive Date: 20240827
  Receipt Date: 20240827
  Transmission Date: 20241017
  Serious: Yes (Other)
  Sender: AUROBINDO
  Company Number: DE-BRISTOL-MYERS SQUIBB COMPANY-2024-115543

PATIENT
  Age: 62 Year
  Sex: Male
  Weight: 71 kg

DRUGS (15)
  1. CARBOPLATIN [Suspect]
     Active Substance: CARBOPLATIN
     Indication: Non-small cell lung cancer
     Dosage: 5 AUC - MG/MIN*ML
     Route: 042
     Dates: start: 20240529
  2. CARBOPLATIN [Suspect]
     Active Substance: CARBOPLATIN
     Dosage: 5 AUC - MG/MIN*ML
     Route: 042
     Dates: start: 20240619
  3. CARBOPLATIN [Suspect]
     Active Substance: CARBOPLATIN
     Dosage: 5 AUC - MG/MIN*ML
     Route: 042
     Dates: start: 20240710
  4. PACLITAXEL [Suspect]
     Active Substance: PACLITAXEL
     Indication: Non-small cell lung cancer
     Dosage: 180 MILLIGRAM/SQ. METER
     Route: 042
     Dates: start: 20240612
  5. PACLITAXEL [Suspect]
     Active Substance: PACLITAXEL
     Dosage: 180 MILLIGRAM/SQ. METER
     Route: 042
     Dates: start: 20240529
  6. PACLITAXEL [Suspect]
     Active Substance: PACLITAXEL
     Dosage: 180 MILLIGRAM/SQ. METER
     Route: 042
     Dates: start: 20240710
  7. PACLITAXEL [Suspect]
     Active Substance: PACLITAXEL
     Dosage: 180 MILLIGRAM/SQ. METER
     Route: 042
     Dates: start: 20240619
  8. PACLITAXEL [Suspect]
     Active Substance: PACLITAXEL
     Dosage: 180 MILLIGRAM/SQ. METER
     Route: 042
     Dates: start: 20240724
  9. PACLITAXEL [Suspect]
     Active Substance: PACLITAXEL
     Dosage: 180 MILLIGRAM/SQ. METER
     Route: 042
     Dates: start: 20240717
  10. PACLITAXEL [Suspect]
     Active Substance: PACLITAXEL
     Dosage: 180 MILLIGRAM/SQ. METER
     Route: 042
     Dates: start: 20240703
  11. PACLITAXEL [Suspect]
     Active Substance: PACLITAXEL
     Dosage: 180 MILLIGRAM/SQ. METER
     Route: 042
     Dates: start: 20240605
  12. PACLITAXEL [Suspect]
     Active Substance: PACLITAXEL
     Dosage: 180 MILLIGRAM/SQ. METER
     Route: 042
     Dates: start: 20240626
  13. NIVOLUMAB [Suspect]
     Active Substance: NIVOLUMAB
     Indication: Non-small cell lung cancer
     Dosage: 360 MILLIGRAM
     Route: 042
     Dates: start: 20240529, end: 20240710
  14. PANTOPRAZOLE SODIUM [Concomitant]
     Active Substance: PANTOPRAZOLE SODIUM
     Indication: Prophylaxis
     Dosage: 40 MILLIGRAM AS NECESSARY
     Route: 048
     Dates: start: 202303
  15. OLMESARTAN [Concomitant]
     Active Substance: OLMESARTAN
     Indication: Hypertonia
     Dosage: DAILY
     Route: 048
     Dates: start: 202303

REACTIONS (3)
  - Peripheral sensory neuropathy [Not Recovered/Not Resolved]
  - Nail discolouration [Not Recovered/Not Resolved]
  - Prescribed overdose [Unknown]

NARRATIVE: CASE EVENT DATE: 20240717
